FAERS Safety Report 21064874 (Version 1)
Quarter: 2022Q3

REPORT INFORMATION
  Report Type: Spontaneous
  Country: FR (occurrence: FR)
  Receive Date: 20220711
  Receipt Date: 20220711
  Transmission Date: 20221026
  Serious: Yes (Hospitalization)
  Sender: FDA-Public Use
  Company Number: None

PATIENT
  Age: 74 Year
  Sex: Female
  Weight: 58 kg

DRUGS (3)
  1. OXYCODONE HYDROCHLORIDE [Suspect]
     Active Substance: OXYCODONE HYDROCHLORIDE
     Indication: Back pain
     Dosage: 2 FOIS PAR JOUR (2 TIMES PER DAY)
     Route: 065
     Dates: start: 20220512, end: 20220520
  2. OXYCODONE HYDROCHLORIDE [Suspect]
     Active Substance: OXYCODONE HYDROCHLORIDE
     Indication: Back pain
     Dosage: 4 CP PAR JOUR (4 TABLETS PER DAY) (STRENGTH: 5 MG)
     Route: 048
     Dates: start: 20220512, end: 20220520
  3. ACETAMINOPHEN [Suspect]
     Active Substance: ACETAMINOPHEN
     Indication: Back pain
     Dosage: 2 GELULES DE 500 MG 4 FOIS PAR JOUR (2 CAPSULES OF 500 MG 4 TIMES A DAY)
     Route: 065
     Dates: start: 20220512, end: 20220520

REACTIONS (1)
  - Hepatic cytolysis [Recovered/Resolved]

NARRATIVE: CASE EVENT DATE: 20220517
